FAERS Safety Report 24766544 (Version 1)
Quarter: 2024Q4

REPORT INFORMATION
  Report Type: Spontaneous
  Country: US (occurrence: US)
  Receive Date: 20241223
  Receipt Date: 20241223
  Transmission Date: 20250114
  Serious: Yes (Other)
  Sender: AMGEN
  Company Number: US-AMGEN-USASP2024247323

PATIENT
  Age: 8 Year
  Sex: Male

DRUGS (2)
  1. BEVACIZUMAB [Suspect]
     Active Substance: BEVACIZUMAB
     Indication: Von Hippel-Lindau disease
     Dosage: UNK, EVERY 3-4 MONTHS
  2. PROPRANOLOL [Concomitant]
     Active Substance: PROPRANOLOL HYDROCHLORIDE
     Indication: Von Hippel-Lindau disease
     Dosage: UNK
     Route: 065

REACTIONS (5)
  - Haemangioblastoma [Recovering/Resolving]
  - Retinal detachment [Unknown]
  - Anaemia [Unknown]
  - Drug effective for unapproved indication [Unknown]
  - Off label use [Unknown]
